FAERS Safety Report 9496525 (Version 4)
Quarter: 2014Q1

REPORT INFORMATION
  Report Type: Report from Study
  Country: CA (occurrence: CA)
  Receive Date: 20130904
  Receipt Date: 20140124
  Transmission Date: 20141002
  Serious: Yes (Hospitalization, Other)
  Sender: FDA-Public Use
  Company Number: PHHY2013CA027179

PATIENT
  Sex: Male

DRUGS (10)
  1. GLIVEC [Suspect]
     Indication: ACUTE LYMPHOCYTIC LEUKAEMIA
     Dosage: 300 MG, BID
     Route: 048
     Dates: start: 20130222, end: 20130809
  2. GLIVEC [Suspect]
     Indication: CHROMOSOME ANALYSIS ABNORMAL
  3. CHEMOTHERAPEUTICS [Concomitant]
     Dosage: UNK UKN, UNK
  4. FOLIC ACID [Concomitant]
  5. CALCIUM [Concomitant]
  6. CELLCEPT [Concomitant]
  7. QUETIAPINE [Concomitant]
  8. VALACYCLOVIR [Concomitant]
  9. FLUCONAZOLE [Concomitant]
  10. VANCOMYCIN [Concomitant]

REACTIONS (21)
  - Clostridium difficile infection [Unknown]
  - Immune system disorder [Unknown]
  - Mouth ulceration [Unknown]
  - Aphagia [Unknown]
  - Lung infection [Unknown]
  - Infection [Unknown]
  - Toothache [Recovering/Resolving]
  - Muscle spasms [Unknown]
  - Fatigue [Unknown]
  - Vomiting [Unknown]
  - Arthralgia [Unknown]
  - Lip swelling [Unknown]
  - Bone pain [Recovering/Resolving]
  - Blood magnesium decreased [Unknown]
  - Nausea [Recovering/Resolving]
  - Pyrexia [Unknown]
  - Local swelling [Unknown]
  - Cough [Unknown]
  - Nasopharyngitis [Unknown]
  - Sinusitis [Unknown]
  - Neck pain [Recovering/Resolving]
